FAERS Safety Report 7967205-4 (Version None)
Quarter: 2011Q4

REPORT INFORMATION
  Report Type: 
  Country: None (occurrence: None)
  Receive Date: 20111209
  Receipt Date: 20111201
  Transmission Date: 20120403
  Serious: Yes (Other)
  Sender: FDA-Public Use
  Company Number: US-JNJFOC-20111201917

PATIENT
  Age: 57 Year
  Sex: Male

DRUGS (8)
  1. NUCYNTA ER [Suspect]
     Indication: PAIN
     Dosage: 2 TABLETS IN ONE DAY
     Route: 048
     Dates: start: 20111128, end: 20111128
  2. MORPHINE SULFATE [Concomitant]
     Indication: PRODUCT USED FOR UNKNOWN INDICATION
     Dosage: ONE EVERY 12 HOURS
     Route: 048
     Dates: start: 20111028
  3. LOVAZA [Concomitant]
     Indication: PRODUCT USED FOR UNKNOWN INDICATION
     Dosage: TWICE DAILY
     Route: 048
     Dates: start: 20111028
  4. DILAUDID [Concomitant]
     Indication: PRODUCT USED FOR UNKNOWN INDICATION
     Dosage: ONE EVERY 6 HOURS
     Route: 048
     Dates: start: 20111028
  5. NEURONTIN [Concomitant]
     Indication: PRODUCT USED FOR UNKNOWN INDICATION
     Dosage: THREE TIMES DAILY
     Route: 048
     Dates: start: 20111028
  6. SIMVASTATIN [Concomitant]
     Indication: PRODUCT USED FOR UNKNOWN INDICATION
     Dosage: ONE ONCE DAILY
     Route: 048
     Dates: start: 20111028
  7. HYDROMORPHONE HCL [Concomitant]
     Indication: PRODUCT USED FOR UNKNOWN INDICATION
     Dosage: ONE TWICE DAILY
     Route: 048
     Dates: start: 20111128
  8. WARFARIN SODIUM [Concomitant]
     Indication: PRODUCT USED FOR UNKNOWN INDICATION
     Dosage: ONE ONCE DAILY
     Route: 048
     Dates: start: 20111028

REACTIONS (3)
  - HALLUCINATION [None]
  - NIGHTMARE [None]
  - ENERGY INCREASED [None]
